FAERS Safety Report 20336372 (Version 2)
Quarter: 2022Q1

REPORT INFORMATION
  Report Type: Spontaneous
  Country: CN (occurrence: CN)
  Receive Date: 20220114
  Receipt Date: 20220128
  Transmission Date: 20220424
  Serious: Yes (Other)
  Sender: FDA-Public Use
  Company Number: CN-ALLERGAN-2201652US

PATIENT
  Sex: Female

DRUGS (10)
  1. TOBRAMYCIN [Suspect]
     Active Substance: TOBRAMYCIN
     Indication: Uveitis
     Dosage: UNK UNK, TID
  2. TOBRAMYCIN [Suspect]
     Active Substance: TOBRAMYCIN
     Indication: Keratitis
  3. FLUOROMETHOLONE [Suspect]
     Active Substance: FLUOROMETHOLONE
     Indication: Uveitis
     Dosage: UNK, TID
  4. FLUOROMETHOLONE [Suspect]
     Active Substance: FLUOROMETHOLONE
     Indication: Keratitis
     Dosage: UNK, BID
  5. PREDNISOLONE [Suspect]
     Active Substance: PREDNISOLONE
     Indication: Uveitis
     Dosage: UNK UNK, QID
  6. PREDNISOLONE [Suspect]
     Active Substance: PREDNISOLONE
     Indication: Keratitis
  7. SODIUM HYALURONATE [Suspect]
     Active Substance: HYALURONATE SODIUM
     Indication: Uveitis
     Dosage: UNK, QID
  8. SODIUM HYALURONATE [Suspect]
     Active Substance: HYALURONATE SODIUM
     Indication: Keratitis
  9. PRED FORTE [Suspect]
     Active Substance: PREDNISOLONE ACETATE
     Indication: Uveitis
     Dosage: UNK UNK, QID
  10. PRED FORTE [Suspect]
     Active Substance: PREDNISOLONE ACETATE
     Indication: Keratitis

REACTIONS (5)
  - Keratopathy [Recovering/Resolving]
  - Keratitis [Recovering/Resolving]
  - Hypopyon [Unknown]
  - Corneal endothelial cell loss [Recovering/Resolving]
  - Therapeutic product effect incomplete [Unknown]
